FAERS Safety Report 5640061-5 (Version None)
Quarter: 2008Q1

REPORT INFORMATION
  Report Type: 
  Country: None (occurrence: None)
  Receive Date: 20080227
  Receipt Date: 20080127
  Transmission Date: 20080703
  Serious: No
  Sender: FDA-Public Use
  Company Number: US-BAYER-200812777NA

PATIENT
  Sex: Female

DRUGS (2)
  1. YAZ [Suspect]
     Route: 048
  2. SEPTRA [Concomitant]
     Indication: URINARY TRACT INFECTION

REACTIONS (1)
  - URINARY TRACT INFECTION [None]
